FAERS Safety Report 10263098 (Version 2)
Quarter: 2014Q2

REPORT INFORMATION
  Report Type: Report from Study
  Country: US (occurrence: US)
  Receive Date: 20140626
  Receipt Date: 20140626
  Transmission Date: 20141212
  Serious: Yes (Other)
  Sender: FDA-Public Use
  Company Number: US-MYLANLABS-2014S1001217

PATIENT
  Age: 31 Year
  Sex: Female

DRUGS (7)
  1. CLOZAPINE TABLETS [Suspect]
     Indication: BIPOLAR DISORDER
     Route: 048
     Dates: start: 201308, end: 201401
  2. CLOZAPINE TABLETS [Suspect]
     Indication: BIPOLAR DISORDER
     Route: 048
     Dates: start: 201308, end: 201401
  3. CLOZAPINE TABLETS [Suspect]
     Indication: BIPOLAR DISORDER
     Route: 048
     Dates: start: 201308, end: 201401
  4. SEROQUEL [Concomitant]
     Dosage: 600MG QHS
  5. LITHIUM [Concomitant]
     Dosage: ER
  6. LAMICTAL [Concomitant]
  7. TRILEPTAL [Concomitant]

REACTIONS (4)
  - Granulocytopenia [Recovered/Resolved]
  - Leukopenia [Recovered/Resolved]
  - Nausea [Recovered/Resolved]
  - Vomiting [Recovered/Resolved]
